FAERS Safety Report 4735877-3 (Version None)
Quarter: 2005Q3

REPORT INFORMATION
  Report Type: 
  Country: None (occurrence: None)
  Receive Date: 20050804
  Receipt Date: 20050804
  Transmission Date: 20060218
  Serious: Yes (Other)
  Sender: FDA-Public Use
  Company Number: None

PATIENT
  Age: 37 Year
  Sex: Male
  Weight: 76.2043 kg

DRUGS (2)
  1. PROPECIA [Suspect]
     Indication: ALOPECIA
     Dosage: 1 DAILY ORAL
     Route: 048
     Dates: start: 20041215, end: 20050528
  2. PROPECIA [Suspect]

REACTIONS (19)
  - AFFECTIVE DISORDER [None]
  - ANXIETY [None]
  - ARTHRITIS [None]
  - ASTHENIA [None]
  - BLOOD TESTOSTERONE DECREASED [None]
  - CARDIAC DISORDER [None]
  - COGNITIVE DISORDER [None]
  - CONFUSIONAL STATE [None]
  - DEPRESSION [None]
  - ERECTILE DYSFUNCTION [None]
  - HEART RATE ABNORMAL [None]
  - INFECTION [None]
  - LOSS OF LIBIDO [None]
  - MUSCULAR WEAKNESS [None]
  - NERVOUS SYSTEM DISORDER [None]
  - NERVOUSNESS [None]
  - PENILE PAIN [None]
  - SEMEN ABNORMAL [None]
  - WEIGHT DECREASED [None]
